FAERS Safety Report 10571148 (Version 3)
Quarter: 2014Q4

REPORT INFORMATION
  Report Type: Spontaneous
  Country: FR (occurrence: FR)
  Receive Date: 20141107
  Receipt Date: 20141201
  Transmission Date: 20150529
  Serious: Yes (Other)
  Sender: FDA-Public Use
  Company Number: FR-009507513-1410FRA014177

PATIENT
  Age: 66 Year
  Sex: Female
  Weight: 102 kg

DRUGS (5)
  1. VELMETIA [Suspect]
     Active Substance: METFORMIN\SITAGLIPTIN
     Indication: TYPE 2 DIABETES MELLITUS
     Dosage: 1 DF, QD (1/DAY AT MIDDAY)
     Route: 065
     Dates: start: 20100914, end: 20140616
  2. INIPOMP [Suspect]
     Active Substance: PANTOPRAZOLE SODIUM
     Indication: PRODUCT USED FOR UNKNOWN INDICATION
     Dosage: UNK
     Route: 065
     Dates: start: 20140313
  3. MONURIL [Concomitant]
     Active Substance: FOSFOMYCIN SODIUM
  4. APROVEL [Suspect]
     Active Substance: IRBESARTAN
     Indication: HYPERTENSION
     Dosage: UNK
     Route: 065
     Dates: start: 20051216
  5. TEMERIT [Suspect]
     Active Substance: NEBIVOLOL
     Indication: HYPERTENSION
     Dosage: UNK
     Route: 065
     Dates: start: 20050409

REACTIONS (6)
  - Dizziness [Recovered/Resolved]
  - Asthenia [Recovering/Resolving]
  - Glycosylated haemoglobin decreased [Recovering/Resolving]
  - Weight increased [Recovering/Resolving]
  - Renal failure [Recovered/Resolved]
  - Anaemia megaloblastic [Recovering/Resolving]

NARRATIVE: CASE EVENT DATE: 201404
